FAERS Safety Report 21166887 (Version 2)
Quarter: 2022Q4

REPORT INFORMATION
  Report Type: Spontaneous
  Country: AU (occurrence: AU)
  Receive Date: 20220803
  Receipt Date: 20221110
  Transmission Date: 20230113
  Serious: Yes (Other)
  Sender: FDA-Public Use
  Company Number: AU-INSUD PHARMA-2207AU03034

PATIENT
  Age: 35 Year
  Sex: Female

DRUGS (1)
  1. DROSPIRENONE [Suspect]
     Active Substance: DROSPIRENONE
     Indication: Oral contraception
     Dosage: UNK
     Route: 048
     Dates: start: 20220201, end: 20220525

REACTIONS (3)
  - Depression [Recovered/Resolved]
  - Mania [Recovered/Resolved]
  - Crying [Recovered/Resolved]

NARRATIVE: CASE EVENT DATE: 20220215
